FAERS Safety Report 9414966 (Version 1)
Quarter: 2013Q3

REPORT INFORMATION
  Report Type: Spontaneous
  Country: ES (occurrence: ES)
  Receive Date: 20130723
  Receipt Date: 20130723
  Transmission Date: 20140515
  Serious: Yes (Hospitalization)
  Sender: FDA-Public Use
  Company Number: ES-SANOFI-AVENTIS-2013SA071791

PATIENT
  Age: 38 Year
  Sex: Female

DRUGS (8)
  1. CLEXANE [Suspect]
     Indication: THROMBOSIS PROPHYLAXIS
     Dosage: 20MG
     Route: 030
     Dates: start: 20121114, end: 20121119
  2. AMOXICILLIN TRIHYDRATE/CLAVULANIC ACID [Suspect]
     Indication: ANTIBIOTIC PROPHYLAXIS
     Dosage: 1GR/8H IV
     Route: 042
     Dates: start: 20121114, end: 20121120
  3. DESMOPRESSIN [Concomitant]
     Indication: PITUITARY TUMOUR BENIGN
     Dosage: 2MCG
     Route: 042
     Dates: start: 20121116
  4. DEXAMETHASONE [Concomitant]
     Indication: PITUITARY TUMOUR BENIGN
     Dosage: 4MG
     Route: 042
     Dates: start: 20121119
  5. HYDROCORTISONE [Concomitant]
     Dosage: 20MG/8H EN DOSIS DESCENDENTE CADA 3 DIAS
     Route: 048
     Dates: start: 20121114
  6. LEVOTHYROXINE SODIUM [Concomitant]
     Indication: HYPOTHYROIDISM
     Dosage: 75MCG
     Route: 048
     Dates: start: 2007
  7. PANTOPRAZOLE [Concomitant]
     Indication: PROPHYLAXIS AGAINST GASTROINTESTINAL ULCER
     Dosage: 40MG
     Route: 048
     Dates: start: 20121114
  8. PARACETAMOL [Concomitant]
     Indication: PAIN
     Dosage: 1GR/8H
     Route: 042
     Dates: start: 20121114

REACTIONS (1)
  - Hepatitis [Recovered/Resolved]
